FAERS Safety Report 23738097 (Version 1)
Quarter: 2024Q2

REPORT INFORMATION
  Report Type: Spontaneous
  Country: GR (occurrence: GR)
  Receive Date: 20240412
  Receipt Date: 20240412
  Transmission Date: 20240716
  Serious: Yes (Life-Threatening)
  Sender: FDA-Public Use
  Company Number: GR-PFIZER INC-PV202400047238

PATIENT
  Age: 51 Year
  Sex: Male

DRUGS (2)
  1. METHYLPREDNISOLONE SODIUM SUCCINATE [Suspect]
     Active Substance: METHYLPREDNISOLONE SODIUM SUCCINATE
     Indication: Respiratory tract infection
     Dosage: UNK
     Route: 041
  2. COTRIMOXAZOLE [Suspect]
     Active Substance: SULFAMETHOXAZOLE\TRIMETHOPRIM
     Indication: Respiratory tract infection
     Dosage: UNK
     Route: 042

REACTIONS (1)
  - Respiratory failure [Recovered/Resolved]
